FAERS Safety Report 13763333 (Version 1)
Quarter: 2017Q3

REPORT INFORMATION
  Report Type: Spontaneous
  Country: CN (occurrence: CN)
  Receive Date: 20170718
  Receipt Date: 20170718
  Transmission Date: 20171127
  Serious: Yes (Other)
  Sender: FDA-Public Use
  Company Number: CN-ASTRAZENECA-2017SE73033

PATIENT
  Sex: Female
  Weight: 50 kg

DRUGS (1)
  1. BUDESONIDE. [Suspect]
     Active Substance: BUDESONIDE
     Indication: BRONCHITIS CHRONIC
     Route: 055
     Dates: start: 20170301, end: 20170301

REACTIONS (1)
  - Dyspnoea [Recovering/Resolving]
